FAERS Safety Report 6127633-9 (Version None)
Quarter: 2009Q1

REPORT INFORMATION
  Report Type: 
  Country: None (occurrence: None)
  Receive Date: 20090319
  Receipt Date: 20090319
  Transmission Date: 20090719
  Serious: Yes (Hospitalization)
  Sender: FDA-Public Use
  Company Number: None

PATIENT
  Age: 27 Year
  Sex: Male

DRUGS (2)
  1. TRAMADOL [Suspect]
     Indication: PAIN
     Dosage: 50 MG OTHER PO
     Route: 048
     Dates: start: 20080617, end: 20090109
  2. BUPROPION HCL [Suspect]
     Indication: SMOKING CESSATION THERAPY
     Dosage: 75 MG BID PO
     Route: 048
     Dates: start: 20081117, end: 20090109

REACTIONS (5)
  - ACCIDENT [None]
  - COMPRESSION FRACTURE [None]
  - CONVULSION [None]
  - IMPAIRED DRIVING ABILITY [None]
  - PAIN [None]
